FAERS Safety Report 22850105 (Version 4)
Quarter: 2024Q2

REPORT INFORMATION
  Report Type: Spontaneous
  Country: US (occurrence: US)
  Receive Date: 20230822
  Receipt Date: 20240625
  Transmission Date: 20240715
  Serious: Yes (Other)
  Sender: FDA-Public Use
  Company Number: US-PFIZER INC-PV202300141520

PATIENT
  Age: 50 Year
  Sex: Female

DRUGS (7)
  1. IBRANCE [Suspect]
     Active Substance: PALBOCICLIB
     Indication: Breast cancer metastatic
     Dosage: 125 MG
     Dates: start: 2020, end: 202104
  2. IBRANCE [Suspect]
     Active Substance: PALBOCICLIB
     Dosage: 100 MG
     Dates: start: 202107
  3. FULVESTRANT [Concomitant]
     Active Substance: FULVESTRANT
     Dosage: UNK
     Dates: start: 2020
  4. NEURONTIN [Concomitant]
     Active Substance: GABAPENTIN
     Dosage: 100 MG, 2X/DAY
     Route: 048
  5. GOSERELIN [Concomitant]
     Active Substance: GOSERELIN
     Dosage: UNK
     Dates: start: 2020
  6. ZOMETA [Concomitant]
     Active Substance: ZOLEDRONIC ACID
     Dosage: MONTHLY
     Dates: start: 2020
  7. ZOMETA [Concomitant]
     Active Substance: ZOLEDRONIC ACID
     Dosage: QUARTERLY

REACTIONS (1)
  - Neutropenia [Unknown]

NARRATIVE: CASE EVENT DATE: 20210101
